FAERS Safety Report 19074249 (Version 10)
Quarter: 2025Q3

REPORT INFORMATION
  Report Type: Spontaneous
  Country: CA (occurrence: CA)
  Receive Date: 20210330
  Receipt Date: 20250910
  Transmission Date: 20251020
  Serious: Yes (Hospitalization, Other)
  Sender: TAKEDA
  Company Number: CA-TAKEDA-2021TUS018749

PATIENT
  Age: 35 Year
  Sex: Female

DRUGS (15)
  1. MESALAMINE [Suspect]
     Active Substance: MESALAMINE
     Indication: Colitis ulcerative
     Route: 064
  2. MESALAMINE [Suspect]
     Active Substance: MESALAMINE
  3. AZATHIOPRINE [Suspect]
     Active Substance: AZATHIOPRINE
     Indication: Product used for unknown indication
     Route: 064
  4. AZATHIOPRINE [Suspect]
     Active Substance: AZATHIOPRINE
  5. ESOMEPRAZOLE MAGNESIUM [Suspect]
     Active Substance: ESOMEPRAZOLE MAGNESIUM
     Indication: Product used for unknown indication
     Route: 064
  6. ESOMEPRAZOLE MAGNESIUM [Suspect]
     Active Substance: ESOMEPRAZOLE MAGNESIUM
  7. FIBRINOGEN [Suspect]
     Active Substance: FIBRINOGEN HUMAN
     Indication: Drug therapy
     Route: 064
  8. FIBRINOGEN [Suspect]
     Active Substance: FIBRINOGEN HUMAN
     Indication: Congenital dysfibrinogenaemia
     Route: 064
  9. FIBRINOGEN [Suspect]
     Active Substance: FIBRINOGEN HUMAN
  10. RANITIDINE HYDROCHLORIDE [Suspect]
     Active Substance: RANITIDINE HYDROCHLORIDE
     Indication: Product used for unknown indication
     Route: 064
  11. RANITIDINE HYDROCHLORIDE [Suspect]
     Active Substance: RANITIDINE HYDROCHLORIDE
  12. ESOMEPRAZOLE [Suspect]
     Active Substance: ESOMEPRAZOLE
     Indication: Product used for unknown indication
     Route: 064
  13. ESOMEPRAZOLE [Suspect]
     Active Substance: ESOMEPRAZOLE
  14. RANITIDINE [Suspect]
     Active Substance: RANITIDINE
     Indication: Product used for unknown indication
     Route: 064
  15. RANITIDINE [Suspect]
     Active Substance: RANITIDINE

REACTIONS (7)
  - Haemorrhage in pregnancy [Recovered/Resolved]
  - Infusion site thrombosis [Recovered/Resolved]
  - Maternal exposure during pregnancy [Recovered/Resolved]
  - Haemorrhage foetal [Recovered/Resolved]
  - Foetal growth restriction [Recovered/Resolved]
  - Foetal anaemia [Recovered/Resolved]
  - Foetal exposure during pregnancy [Recovered/Resolved]
